FAERS Safety Report 5420803-4 (Version None)
Quarter: 2007Q3

REPORT INFORMATION
  Report Type: 
  Country: None (occurrence: None)
  Receive Date: 20070816
  Receipt Date: 20070731
  Transmission Date: 20080115
  Serious: Yes (Death, Life-Threatening)
  Sender: FDA-Public Use
  Company Number: 2007JP002081

PATIENT
  Age: 76 Year
  Sex: Female
  Weight: 40 kg

DRUGS (9)
  1. PROGRAF [Suspect]
     Indication: RHEUMATOID ARTHRITIS
     Dosage: 1 MG, UID/QD : 1.5 MG, UID/QD :  2 MG, UID/QD
     Dates: start: 20060728, end: 20060810
  2. PROGRAF [Suspect]
     Indication: RHEUMATOID ARTHRITIS
     Dosage: 1 MG, UID/QD : 1.5 MG, UID/QD :  2 MG, UID/QD
     Dates: start: 20060811, end: 20060831
  3. PROGRAF [Suspect]
     Indication: RHEUMATOID ARTHRITIS
     Dosage: 1 MG, UID/QD : 1.5 MG, UID/QD :  2 MG, UID/QD
     Dates: start: 20060901, end: 20061109
  4. RIMATIL(BUCILLAMINE) FORMULATION UNKNOWN [Suspect]
     Indication: RHEUMATOID ARTHRITIS
     Dosage: 100 MG, UID/QD
     Dates: start: 20060910, end: 20061109
  5. INDOMETHACIN [Concomitant]
  6. PREDNISOLONE [Concomitant]
  7. LANSOPRAZOLE [Concomitant]
  8. FOSAMAC(ALENDRONATE SODIUM) [Concomitant]
  9. BLOPRESS(CANDESARTAN CILEXETIL) [Concomitant]

REACTIONS (11)
  - CARDIAC FAILURE [None]
  - CONDITION AGGRAVATED [None]
  - DYSPNOEA [None]
  - INTERSTITIAL LUNG DISEASE [None]
  - MALAISE [None]
  - ORAL INTAKE REDUCED [None]
  - PLEURAL EFFUSION [None]
  - PNEUMONIA ASPIRATION [None]
  - PO2 DECREASED [None]
  - RESPIRATORY FAILURE [None]
  - RHEUMATOID LUNG [None]
